FAERS Safety Report 4337209-1 (Version None)
Quarter: 2004Q2

REPORT INFORMATION
  Report Type: 
  Country: None (occurrence: None)
  Receive Date: 20040401
  Receipt Date: 20030604
  Transmission Date: 20050107
  Serious: Yes (Other)
  Sender: FDA-Public Use
  Company Number: PHEH2003US04650

PATIENT
  Age: 55 Year
  Sex: Female

DRUGS (7)
  1. VIVELLE-DOT [Suspect]
     Indication: HORMONE REPLACEMENT THERAPY
     Dosage: 0.05 MG, BIW,
     Dates: start: 20020801
  2. NARDIL [Concomitant]
  3. XANAX [Concomitant]
  4. ZANTAC [Concomitant]
  5. NASONEX [Concomitant]
  6. VENTOLIN [Concomitant]
  7. INTAL [Concomitant]

REACTIONS (2)
  - BLOOD URINE [None]
  - URINARY TRACT INFECTION [None]
